FAERS Safety Report 8481540 (Version 2)
Quarter: 2013Q1

REPORT INFORMATION
  Report Type: Spontaneous
  Country: FR (occurrence: FR)
  Receive Date: 20120329
  Receipt Date: 20130314
  Transmission Date: 20140127
  Serious: Yes (Hospitalization)
  Sender: FDA-Public Use
  Company Number: FR-SANOFI-AVENTIS-2012SA019842

PATIENT
  Age: 31 Year
  Sex: Male

DRUGS (5)
  1. PLAQUENIL [Suspect]
     Indication: POLYMYOSITIS
     Route: 048
     Dates: start: 20090901
  2. MABTHERA [Suspect]
     Indication: POLYMYOSITIS
     Dosage: FORM: SOLUTION FOR PERFUSION
     Route: 042
     Dates: start: 200909
  3. MABTHERA [Suspect]
     Indication: POLYMYOSITIS
     Route: 065
     Dates: start: 201004
  4. MABTHERA [Suspect]
     Indication: POLYMYOSITIS
     Route: 065
     Dates: start: 201107, end: 201107
  5. METHOTREXATE [Suspect]
     Indication: POLYMYOSITIS
     Route: 048

REACTIONS (3)
  - Peripheral paralysis [Recovered/Resolved]
  - Off label use [Unknown]
  - Neuropathy peripheral [Recovered/Resolved]
